FAERS Safety Report 10084043 (Version 2)
Quarter: 2014Q2

REPORT INFORMATION
  Report Type: Spontaneous
  Country: JP (occurrence: JP)
  Receive Date: 20140417
  Receipt Date: 20140422
  Transmission Date: 20141212
  Serious: Yes (Hospitalization)
  Sender: FDA-Public Use
  Company Number: JP-PFIZER INC-2014101190

PATIENT
  Age: 77 Year
  Sex: Female
  Weight: 48 kg

DRUGS (11)
  1. VIVIANT [Suspect]
     Indication: OSTEOPOROSIS
     Dosage: 20 MG, 1X/DAY
     Route: 048
     Dates: end: 20140221
  2. ATORVASTATIN CALCIUM [Suspect]
     Indication: DYSLIPIDAEMIA
     Dosage: 10 MG, 1X/DAY
     Route: 048
     Dates: end: 20140221
  3. NOVO HEPARIN CALCIUM [Suspect]
     Indication: PULMONARY EMBOLISM
     Dosage: 15000 IU, DAILY
     Route: 042
     Dates: start: 20140221, end: 20140303
  4. SLONNON [Suspect]
     Indication: HEPARIN-INDUCED THROMBOCYTOPENIA
     Dosage: 30 MG, 2X/DAY
     Route: 042
     Dates: start: 20140306, end: 20140308
  5. SLONNON [Suspect]
     Dosage: 30 MG, 2X/DAY
     Route: 042
     Dates: start: 20140310, end: 20140310
  6. ALFACALCIDOL [Suspect]
     Indication: OSTEOPOROSIS
     Dosage: 0.5 UG, 1X/DAY
     Route: 048
     Dates: end: 20140221
  7. MAGMITT [Suspect]
     Indication: CONSTIPATION
     Dosage: 500 MG, 2X/DAY
     Route: 048
     Dates: end: 20140221
  8. ZOSYN [Suspect]
     Indication: HEPATIC CYST INFECTION
     Dosage: 4.5 G, 8X/DAY
     Route: 042
     Dates: start: 20140307, end: 20140324
  9. WARFARIN [Concomitant]
     Dosage: UNK
     Route: 048
     Dates: start: 20140221, end: 20140306
  10. WARFARIN [Concomitant]
     Dosage: UNK
     Route: 048
     Dates: start: 20140308
  11. FERROMIA [Concomitant]
     Route: 048

REACTIONS (3)
  - Pulmonary embolism [Recovering/Resolving]
  - Heparin-induced thrombocytopenia [Recovering/Resolving]
  - Rash [Recovering/Resolving]
